FAERS Safety Report 7746210-7 (Version None)
Quarter: 2011Q3

REPORT INFORMATION
  Report Type: 
  Country: None (occurrence: None)
  Receive Date: 20110907
  Receipt Date: 20110815
  Transmission Date: 20111222
  Serious: Yes (Hospitalization)
  Sender: FDA-Public Use
  Company Number: 2135225-2011-00085

PATIENT
  Age: 53 Year
  Sex: Female
  Weight: 80 kg

DRUGS (1)
  1. AETHOXYSKLEROL [Suspect]
     Indication: VARICOSE VEIN
     Dosage: 60MG, ONCE, INJECTION

REACTIONS (2)
  - PULMONARY EMBOLISM [None]
  - PELVIC VENOUS THROMBOSIS [None]
